FAERS Safety Report 16838685 (Version 1)
Quarter: 2019Q3

REPORT INFORMATION
  Report Type: Report from Study
  Country: None (occurrence: PA)
  Receive Date: 20190923
  Receipt Date: 20190923
  Transmission Date: 20191005
  Serious: Yes (Other)
  Sender: FDA-Public Use
  Company Number: PA-ABBVIE-19K-125-2933100-00

PATIENT
  Age: 43 Year
  Sex: Male
  Weight: 104 kg

DRUGS (2)
  1. VERAPAMILO [Concomitant]
     Indication: HYPERTENSION
     Route: 048
     Dates: start: 201808
  2. HUMIRA [Suspect]
     Active Substance: ADALIMUMAB
     Indication: CROHN^S DISEASE
     Route: 058
     Dates: start: 20190415

REACTIONS (4)
  - Melaena [Recovered/Resolved]
  - Abnormal faeces [Recovered/Resolved]
  - Abdominal distension [Recovered/Resolved]
  - Abdominal pain [Recovered/Resolved]

NARRATIVE: CASE EVENT DATE: 20190914
